FAERS Safety Report 13893420 (Version 1)
Quarter: 2017Q3

REPORT INFORMATION
  Report Type: Spontaneous
  Country: US (occurrence: US)
  Receive Date: 20170822
  Receipt Date: 20170822
  Transmission Date: 20171127
  Serious: No
  Sender: FDA-Public Use
  Company Number: US-ENDO PHARMACEUTICALS INC-2017-002512

PATIENT
  Sex: Male

DRUGS (4)
  1. TESTOPEL [Suspect]
     Active Substance: TESTOSTERONE
     Dosage: 10 TO 11 PELLETS EVERY THREE MONTHS
     Route: 065
  2. TESTOPEL [Suspect]
     Active Substance: TESTOSTERONE
     Dosage: SIX PELLETS
     Route: 065
  3. TESTOPEL [Suspect]
     Active Substance: TESTOSTERONE
     Indication: PRODUCT USED FOR UNKNOWN INDICATION
     Dosage: UNK UNK, UNKNOWN
     Route: 065
     Dates: start: 2015
  4. TESTOPEL [Suspect]
     Active Substance: TESTOSTERONE
     Dosage: TYPICALLY HAD 10 TO 12 PELLETS IMPLANTED
     Route: 065

REACTIONS (3)
  - Prescribed overdose [Unknown]
  - Blood testosterone decreased [Unknown]
  - Ill-defined disorder [Unknown]
